FAERS Safety Report 11514117 (Version 1)
Quarter: 2015Q3

REPORT INFORMATION
  Report Type: Spontaneous
  Country: US (occurrence: US)
  Receive Date: 20150903
  Receipt Date: 20150903
  Transmission Date: 20151125
  Serious: No
  Sender: FDA-Public Use
  Company Number: US-ELI_LILLY_AND_COMPANY-US201212003156

PATIENT
  Age: 61 Year
  Sex: Female

DRUGS (7)
  1. LEVEMIR [Concomitant]
     Active Substance: INSULIN DETEMIR
  2. CYMBALTA [Suspect]
     Active Substance: DULOXETINE HYDROCHLORIDE
     Indication: DEPRESSION
     Dosage: 30 MG, QD
     Dates: start: 20121205
  3. XANAX [Concomitant]
     Active Substance: ALPRAZOLAM
  4. NOVOLOG [Concomitant]
     Active Substance: INSULIN ASPART
  5. AMBIEN [Concomitant]
     Active Substance: ZOLPIDEM TARTRATE
  6. COREG [Concomitant]
     Active Substance: CARVEDILOL
  7. TYLENOL WITH CODEINE [Concomitant]
     Active Substance: ACETAMINOPHEN\CODEINE PHOSPHATE

REACTIONS (5)
  - Hot flush [Unknown]
  - Dry mouth [Unknown]
  - Insomnia [Unknown]
  - Parosmia [Unknown]
  - Nausea [Unknown]

NARRATIVE: CASE EVENT DATE: 20121206
